FAERS Safety Report 9121370 (Version 3)
Quarter: 2013Q1

REPORT INFORMATION
  Report Type: Spontaneous
  Country: AU (occurrence: AU)
  Receive Date: 20130225
  Receipt Date: 20130304
  Transmission Date: 20140127
  Serious: Yes (Death, Hospitalization, Disabling)
  Sender: FDA-Public Use
  Company Number: AU-ASTRAZENECA-2013SE12212

PATIENT
  Age: 19283 Day
  Sex: Male
  Weight: 300 kg

DRUGS (10)
  1. SEROQUEL [Suspect]
     Indication: SCHIZOPHRENIA
     Route: 048
     Dates: start: 201211, end: 20130116
  2. SEROQUEL [Suspect]
     Indication: SCHIZOPHRENIA
     Route: 048
     Dates: start: 20130117, end: 20130118
  3. AZITHROMYCIN [Concomitant]
  4. INDOMETHACIN [Concomitant]
     Indication: PAIN
     Route: 048
  5. DULOXETINE [Concomitant]
     Indication: DEPRESSION
     Route: 048
  6. MONOPLUS [Concomitant]
     Indication: HYPERTENSION
     Dosage: 20/12.5 MG
     Route: 048
  7. ATENOLOL [Concomitant]
     Indication: HYPERTENSION
     Route: 048
  8. SOMAC [Concomitant]
  9. SYMBICORT [Concomitant]
     Dosage: 200/6 UG TWO TIMES DAILY
     Route: 055
  10. VENTOLIN CFC [Concomitant]

REACTIONS (5)
  - Respiratory failure [Fatal]
  - Pulmonary embolism [Unknown]
  - Oxygen saturation decreased [Recovered/Resolved]
  - Hypercapnia [Recovered/Resolved]
  - Medication error [Recovered/Resolved]
